FAERS Safety Report 5568639-8 (Version None)
Quarter: 2007Q4

REPORT INFORMATION
  Report Type: 
  Country: None (occurrence: None)
  Receive Date: 20071220
  Receipt Date: 20071214
  Transmission Date: 20080405
  Serious: Yes (Other)
  Sender: FDA-Public Use
  Company Number: PHFR2007GB03335

PATIENT
  Age: 80 Year
  Sex: Male
  Weight: 86.6 kg

DRUGS (4)
  1. GLEEVEC [Suspect]
     Indication: GASTROINTESTINAL STROMAL TUMOUR
     Dosage: UNK, UNK
     Route: 048
     Dates: start: 20061215
  2. OMEPRAZOLE [Concomitant]
     Indication: DYSPEPSIA
     Dosage: 40MG/DAY
     Route: 048
  3. FLECAINIDE ACETATE [Concomitant]
     Indication: ATRIAL FIBRILLATION
     Dosage: 200MG/DAY
     Route: 048
  4. SPIRIVA [Concomitant]
     Indication: EMPHYSEMA
     Dosage: 18UG

REACTIONS (3)
  - CATARACT [None]
  - CATARACT OPERATION [None]
  - PERIORBITAL OEDEMA [None]
